FAERS Safety Report 25330124 (Version 1)
Quarter: 2025Q2

REPORT INFORMATION
  Report Type: Spontaneous
  Country: GR (occurrence: GR)
  Receive Date: 20250519
  Receipt Date: 20250519
  Transmission Date: 20250716
  Serious: Yes (Life-Threatening)
  Sender: DAIICHI
  Company Number: GR-AstraZeneca-CH-00870649A

PATIENT
  Sex: Female

DRUGS (1)
  1. TRASTUZUMAB DERUXTECAN [Suspect]
     Active Substance: TRASTUZUMAB DERUXTECAN
     Indication: Product used for unknown indication
     Route: 065

REACTIONS (1)
  - Breast cancer metastatic [Unknown]
